FAERS Safety Report 25046904 (Version 1)
Quarter: 2025Q1

REPORT INFORMATION
  Report Type: Spontaneous
  Country: US (occurrence: None)
  Receive Date: 20250304
  Receipt Date: 20250304
  Transmission Date: 20250409
  Serious: Yes (Life-Threatening, Hospitalization, Other)
  Sender: FDA-CTU
  Company Number: None

PATIENT
  Age: 24 Year
  Sex: Female
  Weight: 65.77 kg

DRUGS (4)
  1. NEXPLANON [Suspect]
     Active Substance: ETONOGESTREL
  2. VITAMIN B [Concomitant]
     Active Substance: VITAMIN B
  3. MAGNESIUM [Concomitant]
     Active Substance: MAGNESIUM
  4. OMEGA 3 [Concomitant]
     Active Substance: CAPSAICIN

REACTIONS (15)
  - Mood swings [None]
  - Intrusive thoughts [None]
  - Anxiety [None]
  - Feeling cold [None]
  - Hyperhidrosis [None]
  - Paraesthesia [None]
  - Tachyphrenia [None]
  - Nausea [None]
  - Headache [None]
  - Mental disorder [None]
  - Crying [None]
  - Brain fog [None]
  - Complication associated with device [None]
  - Quality of life decreased [None]
  - Family stress [None]

NARRATIVE: CASE EVENT DATE: 20240708
